FAERS Safety Report 9346643 (Version 2)
Quarter: 2013Q3

REPORT INFORMATION
  Report Type: Spontaneous
  Country: US (occurrence: US)
  Receive Date: 20130613
  Receipt Date: 20130823
  Transmission Date: 20140515
  Serious: Yes (Other)
  Sender: FDA-Public Use
  Company Number: US-BAYER-2013-071619

PATIENT
  Age: 85 Year
  Sex: Female
  Weight: 84 kg

DRUGS (6)
  1. BAYER GENUINE ASPIRIN ORIGINAL STRENGTH [Suspect]
     Indication: PYREXIA
     Dosage: 2 DF, QD
     Route: 048
  2. BAYER GENUINE ASPIRIN ORIGINAL STRENGTH [Suspect]
     Indication: PAIN
  3. NORVASC [Concomitant]
     Dosage: 10 MG, UNK
     Route: 048
  4. TOPROL [Concomitant]
     Dosage: 5 MG, QD
     Route: 048
  5. SYNTHROID [Concomitant]
     Dosage: 175 MG, QD
     Route: 048
  6. CENTRUM SILVER [Concomitant]
     Dosage: 1 DF, QD
     Route: 048
     Dates: start: 1980

REACTIONS (1)
  - Ulcer haemorrhage [Recovered/Resolved]
